FAERS Safety Report 24701611 (Version 1)
Quarter: 2024Q4

REPORT INFORMATION
  Report Type: Spontaneous
  Country: US (occurrence: None)
  Receive Date: 20241205
  Receipt Date: 20241205
  Transmission Date: 20250114
  Serious: Yes (Hospitalization)
  Sender: Public
  Company Number: None

PATIENT
  Age: 67 Year
  Sex: Female

DRUGS (1)
  1. STELARA [Suspect]
     Active Substance: USTEKINUMAB
     Indication: Crohn^s disease
     Dosage: OTHER FREQUENCY : EVERY12WEEKS;?
     Route: 042
     Dates: start: 202106

REACTIONS (3)
  - Colitis ulcerative [None]
  - Condition aggravated [None]
  - Renal cancer [None]

NARRATIVE: CASE EVENT DATE: 20241119
